FAERS Safety Report 8294516-8 (Version None)
Quarter: 2012Q2

REPORT INFORMATION
  Report Type: 
  Country: None (occurrence: None)
  Receive Date: 20120418
  Receipt Date: 20120409
  Transmission Date: 20120825
  Serious: Yes (Other)
  Sender: FDA-Public Use
  Company Number: FR-ASTRAZENECA-2012SE23237

PATIENT
  Age: 76 Year
  Sex: Male
  Weight: 83 kg

DRUGS (6)
  1. SODIUM CHLORIDE [Concomitant]
     Route: 040
  2. ROPIVACAINE HYDROCHLORIDE [Suspect]
     Indication: LOCAL ANAESTHESIA
  3. PROPOFOL [Concomitant]
     Indication: GENERAL ANAESTHESIA
  4. SUFENTANIL CITRATE [Concomitant]
     Indication: GENERAL ANAESTHESIA
  5. ATRACURIUM [Concomitant]
     Indication: GENERAL ANAESTHESIA
  6. SEVOFLURANE [Concomitant]
     Indication: MAINTENANCE OF ANAESTHESIA

REACTIONS (1)
  - QUADRIPLEGIA [None]
